FAERS Safety Report 7926409-7 (Version None)
Quarter: 2011Q4

REPORT INFORMATION
  Report Type: 
  Country: None (occurrence: None)
  Receive Date: 20111118
  Receipt Date: 20111109
  Transmission Date: 20120403
  Serious: No
  Sender: FDA-Public Use
  Company Number: US-BIOGENIDEC-2011BI042907

PATIENT
  Age: 60 Year
  Sex: Female

DRUGS (3)
  1. ESTRING [Concomitant]
     Indication: MENOPAUSE
     Dates: end: 20111101
  2. TYSABRI [Suspect]
     Indication: MULTIPLE SCLEROSIS
     Route: 042
     Dates: start: 20110826
  3. ESTRING [Concomitant]
     Indication: VULVOVAGINAL DRYNESS
     Dates: end: 20111101

REACTIONS (5)
  - VULVOVAGINAL BURNING SENSATION [None]
  - URINARY RETENTION [None]
  - NIGHT SWEATS [None]
  - RESTLESS LEGS SYNDROME [None]
  - MUSCLE SPASTICITY [None]
